FAERS Safety Report 18413503 (Version 1)
Quarter: 2020Q4

REPORT INFORMATION
  Report Type: Spontaneous
  Country: CN (occurrence: CN)
  Receive Date: 20201021
  Receipt Date: 20201021
  Transmission Date: 20210114
  Serious: Yes (Other)
  Sender: FDA-Public Use
  Company Number: CN-ROCHE-2697567

PATIENT
  Age: 70 Year
  Sex: Male
  Weight: 49 kg

DRUGS (16)
  1. SODIUM CHLORIDE. [Concomitant]
     Active Substance: SODIUM CHLORIDE
     Route: 041
     Dates: start: 20200903, end: 20201012
  2. YA DAN ZI YOU RU ZHU SHE YE [Concomitant]
     Indication: LYMPHOMA
     Route: 041
     Dates: start: 20200911, end: 20201012
  3. POTASSIUM CHLORIDE SUSTAINED RELEASE [Concomitant]
     Indication: LYMPHOMA
     Route: 048
     Dates: start: 20200924, end: 20201012
  4. DIPHENHYDRAMINE HYDROCHLORIDE. [Concomitant]
     Active Substance: DIPHENHYDRAMINE HYDROCHLORIDE
     Indication: LYMPHOMA
     Route: 030
     Dates: start: 20201009, end: 20201009
  5. THYMALFASIN [Concomitant]
     Active Substance: THYMALFASIN
     Indication: LYMPHOMA
     Route: 058
     Dates: start: 20200922, end: 20201012
  6. TROPISETRON HYDROCHLORIDE [Concomitant]
     Active Substance: TROPISETRON HYDROCHLORIDE
     Indication: LYMPHOMA
     Route: 041
     Dates: start: 20201009, end: 20201009
  7. RITUXIMAB. [Suspect]
     Active Substance: RITUXIMAB
     Indication: LYMPHOMA
     Route: 041
     Dates: start: 20201009, end: 20201009
  8. SODIUM CHLORIDE. [Concomitant]
     Active Substance: SODIUM CHLORIDE
     Route: 041
     Dates: start: 20201009, end: 20201009
  9. FAT EMULSION INJECTION (C14-24) [Concomitant]
     Indication: LYMPHOMA
     Route: 041
     Dates: start: 20200908, end: 20201012
  10. SHEN MAI ZHU SHE YE [Concomitant]
     Active Substance: HERBALS
     Indication: LYMPHOMA
     Route: 041
     Dates: start: 20200911, end: 20201012
  11. PARACETAMOL [Concomitant]
     Active Substance: ACETAMINOPHEN
     Indication: LYMPHOMA
     Route: 048
     Dates: start: 20201009, end: 20201009
  12. METOCLOPRAMIDE DIHYDROCHLORIDE [Concomitant]
     Indication: LYMPHOMA
     Route: 030
     Dates: start: 20201009, end: 20201009
  13. SODIUM CHLORIDE. [Concomitant]
     Active Substance: SODIUM CHLORIDE
     Route: 041
     Dates: start: 20200911, end: 20201012
  14. SODIUM CHLORIDE. [Concomitant]
     Active Substance: SODIUM CHLORIDE
     Route: 041
     Dates: start: 20201009, end: 20201009
  15. GLUCOSE [Concomitant]
     Active Substance: DEXTROSE
     Indication: LYMPHOMA
     Route: 041
     Dates: start: 20200911, end: 20201012
  16. OMEPRAZOLE SODIUM [Concomitant]
     Active Substance: OMEPRAZOLE SODIUM
     Indication: LYMPHOMA
     Route: 041
     Dates: start: 20200909, end: 20201012

REACTIONS (5)
  - Bronchospasm [Recovering/Resolving]
  - Chills [Recovering/Resolving]
  - Tachycardia [Recovering/Resolving]
  - Labile blood pressure [Recovering/Resolving]
  - Oxygen saturation decreased [Recovered/Resolved]

NARRATIVE: CASE EVENT DATE: 20201009
